FAERS Safety Report 8197693 (Version 2)
Quarter: 2012Q4

REPORT INFORMATION
  Report Type: 
  Country: US (occurrence: US)
  Receive Date: 20111025
  Receipt Date: 20121213
  Transmission Date: 20130627
  Serious: Yes (Hospitalization, Other)
  Sender: FDA-Public Use
  Company Number: US-ELI_LILLY_AND_COMPANY-US201110004569

PATIENT
  Age: 59 Year
  Sex: Male

DRUGS (10)
  1. BYETTA [Suspect]
     Dosage: 5 ug, bid
     Route: 058
     Dates: start: 20060616, end: 20070404
  2. COREG [Concomitant]
     Dosage: 3.125 DF, bid
  3. PLAVIX [Concomitant]
     Dosage: 75 mg, qd
  4. DIOVAN [Concomitant]
     Dosage: 320 mg, qd
  5. LEXAPRO [Concomitant]
     Dosage: 20 mg, qd
  6. AVANDIA [Concomitant]
     Dosage: 2 mg, qd
  7. CLONIDINE [Concomitant]
     Dosage: 0.3 mg, qd
  8. VICODIN [Concomitant]
     Dosage: UNK, prn
  9. LASIX [Concomitant]
     Dosage: 20 mg, qd
  10. AMARYL [Concomitant]
     Dosage: 4 mg, qd

REACTIONS (2)
  - Renal failure [Unknown]
  - Pancreatitis [Unknown]
